FAERS Safety Report 4555758-8 (Version None)
Quarter: 2005Q1

REPORT INFORMATION
  Report Type: 
  Country: None (occurrence: None)
  Receive Date: 20050119
  Receipt Date: 20041125
  Transmission Date: 20050727
  Serious: Yes (Life-Threatening)
  Sender: FDA-Public Use
  Company Number: 200413606JP

PATIENT
  Age: 77 Year
  Sex: Male

DRUGS (20)
  1. KETEK [Suspect]
     Indication: BRONCHITIS
     Route: 048
     Dates: start: 20041028, end: 20041029
  2. MUCOSOLVAN [Concomitant]
     Indication: BRONCHITIS
     Route: 048
     Dates: start: 20041028, end: 20041029
  3. HOKUNALIN [Concomitant]
     Indication: BRONCHITIS
     Route: 003
     Dates: start: 20041028, end: 20041029
  4. PREDNISOLONE [Concomitant]
     Route: 048
  5. MYONAL [Concomitant]
     Route: 048
  6. LOXONIN [Concomitant]
     Route: 048
  7. AMOBAN [Concomitant]
     Route: 048
  8. ANTIINFLAMMATORY/ANTIRHEUMATIC PRODUCTS [Concomitant]
     Dosage: DOSE: 2-3 TIMES A DAY
     Route: 003
  9. VOLTAREN [Concomitant]
     Dosage: DOSE: 2-3 TIMES A DAY
     Route: 003
  10. KETOPROFEN [Concomitant]
     Route: 003
  11. VOLTAREN SUPPOSITORIEN [Concomitant]
     Route: 054
  12. NORVASC [Concomitant]
     Route: 048
  13. BLOPRESS [Concomitant]
     Route: 048
  14. LIPOVAS [Concomitant]
     Route: 048
  15. TAKEPRON [Concomitant]
     Route: 048
     Dates: start: 20020801
  16. HACHIMIJIO-GAN [Concomitant]
     Route: 048
  17. HARNAL [Concomitant]
     Route: 048
  18. ASPIRIN [Concomitant]
     Route: 048
  19. UBRETID [Concomitant]
     Route: 048
  20. SHAKUYAKUKANZOUTOU [Concomitant]
     Route: 048

REACTIONS (4)
  - AMNESIA [None]
  - BLOOD PRESSURE INCREASED [None]
  - DEPRESSED LEVEL OF CONSCIOUSNESS [None]
  - ROAD TRAFFIC ACCIDENT [None]
